FAERS Safety Report 18015142 (Version 1)
Quarter: 2020Q3

REPORT INFORMATION
  Report Type: Spontaneous
  Country: US (occurrence: US)
  Receive Date: 20200713
  Receipt Date: 20200713
  Transmission Date: 20201103
  Serious: No
  Sender: FDA-Public Use
  Company Number: US-FOUNDATIONCONSUMERHC-2020-US-012357

PATIENT
  Age: 31 Year
  Sex: Female
  Weight: 48.08 kg

DRUGS (2)
  1. PLAN B ONE?STEP [Suspect]
     Active Substance: LEVONORGESTREL
     Indication: POST COITAL CONTRACEPTION
     Dosage: 1.5MG X 1 DOSE
     Route: 048
     Dates: start: 20200614, end: 20200614
  2. UNSPECIFIED OVER THE COUNTER ALLERGY MEDICATION [Concomitant]
     Dosage: UNSPECIFIED

REACTIONS (3)
  - Vaginal haemorrhage [Recovered/Resolved]
  - Fatigue [Not Recovered/Not Resolved]
  - Menstruation delayed [Not Recovered/Not Resolved]

NARRATIVE: CASE EVENT DATE: 20200614
